FAERS Safety Report 13372066 (Version 2)
Quarter: 2017Q2

REPORT INFORMATION
  Report Type: Report from Study
  Country: IT (occurrence: IT)
  Receive Date: 20170327
  Receipt Date: 20170426
  Transmission Date: 20170830
  Serious: Yes (Other)
  Sender: FDA-Public Use
  Company Number: IT-009507513-1703ITA009008

PATIENT
  Age: 52 Year
  Sex: Female

DRUGS (3)
  1. SAFINAMIDE [Suspect]
     Active Substance: SAFINAMIDE
     Dosage: 50 MG (ONE DOSE UNIT), DAILY
     Route: 048
     Dates: start: 20161121
  2. TRITTICO [Suspect]
     Active Substance: TRAZODONE HYDROCHLORIDE
     Dosage: 5 DROPS, DAILY
     Route: 048
     Dates: start: 20161121
  3. SINEMET [Suspect]
     Active Substance: CARBIDOPA\LEVODOPA
     Dosage: 2 DOSE UNITS, DAILY
     Route: 048
     Dates: start: 20161121

REACTIONS (4)
  - Hallucination, visual [Unknown]
  - Aggression [Unknown]
  - Psychomotor hyperactivity [Unknown]
  - Tremor [Unknown]

NARRATIVE: CASE EVENT DATE: 20161123
